FAERS Safety Report 9885685 (Version 1)
Quarter: 2014Q1

REPORT INFORMATION
  Report Type: Not Available
  Country: NO (occurrence: NO)
  Receive Date: 20140210
  Receipt Date: 20140210
  Transmission Date: 20141002
  Serious: Yes (Death, Other)
  Sender: FDA-Public Use
  Company Number: NO-NAPPMUNDI-GBR-2014-0016945

PATIENT
  Age: 20 Year
  Sex: Female

DRUGS (19)
  1. OXYNORM KAPSLER, HARDE [Suspect]
     Indication: PRODUCT USED FOR UNKNOWN INDICATION
     Route: 065
  2. TRAMADOL HCL [Suspect]
     Indication: PRODUCT USED FOR UNKNOWN INDICATION
     Route: 065
  3. ATARAX /00058401/ [Suspect]
     Indication: PRODUCT USED FOR UNKNOWN INDICATION
  4. CATAPRESAN /00171101/ [Suspect]
     Indication: PRODUCT USED FOR UNKNOWN INDICATION
  5. CIPRALEX [Suspect]
     Indication: PRODUCT USED FOR UNKNOWN INDICATION
  6. CIPRAMIL /00582602/ [Suspect]
     Indication: PRODUCT USED FOR UNKNOWN INDICATION
  7. IMOVANE [Suspect]
     Indication: PRODUCT USED FOR UNKNOWN INDICATION
  8. LAMICTAL [Suspect]
     Indication: PRODUCT USED FOR UNKNOWN INDICATION
  9. NOBLIGAN [Suspect]
     Indication: PRODUCT USED FOR UNKNOWN INDICATION
  10. NOZINAN /00038601/ [Suspect]
     Indication: PRODUCT USED FOR UNKNOWN INDICATION
  11. ORFIRIL [Suspect]
     Indication: PRODUCT USED FOR UNKNOWN INDICATION
  12. PINEX FORTE [Suspect]
     Indication: PRODUCT USED FOR UNKNOWN INDICATION
  13. REMERON [Suspect]
     Indication: PRODUCT USED FOR UNKNOWN INDICATION
  14. RIVOTRIL [Suspect]
     Indication: PRODUCT USED FOR UNKNOWN INDICATION
  15. SAROTEX [Suspect]
     Indication: PRODUCT USED FOR UNKNOWN INDICATION
  16. SEROQUEL [Suspect]
     Indication: PRODUCT USED FOR UNKNOWN INDICATION
  17. SOBRIL [Suspect]
     Indication: PRODUCT USED FOR UNKNOWN INDICATION
  18. TRUXAL /00012101/ [Suspect]
     Indication: PRODUCT USED FOR UNKNOWN INDICATION
  19. VIVAL [Suspect]
     Indication: PRODUCT USED FOR UNKNOWN INDICATION

REACTIONS (2)
  - Completed suicide [Fatal]
  - Self injurious behaviour [Unknown]
